FAERS Safety Report 6330547-2 (Version None)
Quarter: 2009Q3

REPORT INFORMATION
  Report Type: 
  Country: None (occurrence: None)
  Receive Date: 20090827
  Receipt Date: 20090819
  Transmission Date: 20100115
  Serious: Yes (Hospitalization)
  Sender: FDA-Public Use
  Company Number: GB-ALLERGAN-0906917US

PATIENT
  Age: 44 Year
  Sex: Female
  Weight: 89 kg

DRUGS (5)
  1. BOTULINUM TOXIN TYPE A [Suspect]
     Indication: HYPERTONIC BLADDER
     Dosage: 200 UNITS, SINGLE
     Route: 030
     Dates: start: 20070111, end: 20070111
  2. BLINDED PLACEBO [Suspect]
     Indication: HYPERTONIC BLADDER
     Dosage: 200 UNITS, SINGLE
     Route: 030
     Dates: start: 20070111, end: 20070111
  3. LAMOTRIGINE [Concomitant]
     Indication: EPILEPSY
     Dosage: 125 MG, QD
     Route: 048
  4. PAROXETINE HCL [Concomitant]
     Indication: DEPRESSION
     Dosage: 40 MG, QD
     Route: 048
  5. ASPIRIN [Concomitant]
     Dosage: 75 MG, QD
     Route: 048

REACTIONS (1)
  - ANGINA PECTORIS [None]
